FAERS Safety Report 9564570 (Version 1)
Quarter: 2013Q3

REPORT INFORMATION
  Report Type: Spontaneous
  Country: US (occurrence: US)
  Receive Date: 20130930
  Receipt Date: 20130930
  Transmission Date: 20140515
  Serious: Yes (Other)
  Sender: FDA-Public Use
  Company Number: US-PFIZER INC-2013277089

PATIENT
  Sex: Female
  Weight: 53.52 kg

DRUGS (4)
  1. CELEBREX [Suspect]
     Indication: ARTHRITIS
     Dosage: UNK
  2. ANSAID [Suspect]
     Indication: ARTHRITIS
     Dosage: UNK
  3. SYNTHROID [Concomitant]
     Indication: THYROID DISORDER
     Dosage: 0.88 MG, 1X/DAY
  4. LOTREL [Concomitant]
     Indication: HYPERTENSION
     Dosage: 5MG (AMLODIPINE) / 20MG (BENAZEPRIL HCL), 1X/DAY

REACTIONS (5)
  - Gastric ulcer haemorrhage [Unknown]
  - Gastrointestinal disorder [Unknown]
  - Pain [Unknown]
  - Activities of daily living impaired [Unknown]
  - Joint range of motion decreased [Unknown]
